FAERS Safety Report 14315512 (Version 1)
Quarter: 2017Q4

REPORT INFORMATION
  Report Type: Spontaneous
  Country: ES (occurrence: ES)
  Receive Date: 20171221
  Receipt Date: 20171221
  Transmission Date: 20180321
  Serious: Yes (Life-Threatening)
  Sender: FDA-Public Use
  Company Number: ES-RARE DISEASE THERAPEUTICS, INC.-2037601

PATIENT
  Age: 13 Year
  Sex: Male

DRUGS (9)
  1. CYTARABINE. [Suspect]
     Active Substance: CYTARABINE
     Route: 042
     Dates: start: 20170820, end: 20170821
  2. VINCRISTINE SULFATE. [Suspect]
     Active Substance: VINCRISTINE SULFATE
     Route: 042
     Dates: start: 20170816, end: 20170821
  3. ERWINIA (ASPARAGINASE) [Suspect]
     Active Substance: ASPARAGINASE ERWINIA CHRYSANTHEMI
     Route: 030
     Dates: start: 20170821, end: 20170829
  4. DEXAMETHASONE. [Suspect]
     Active Substance: DEXAMETHASONE
     Route: 042
     Dates: start: 20170816, end: 20170822
  5. ACICLOVIR [Concomitant]
     Active Substance: ACYCLOVIR
     Dates: start: 20170815
  6. METHOTREXATE. [Suspect]
     Active Substance: METHOTREXATE
     Route: 042
     Dates: start: 20170816, end: 20170818
  7. DEXAMETHASONE. [Concomitant]
     Active Substance: DEXAMETHASONE
     Dates: start: 20170822, end: 20170824
  8. SULFAMETHOXAZOLE AND TRIMETHOPRIM [Concomitant]
     Active Substance: SULFAMETHOXAZOLE\TRIMETHOPRIM
     Dates: start: 20170815
  9. PURIXAN [Suspect]
     Active Substance: MERCAPTOPURINE
     Route: 042
     Dates: start: 20170816, end: 20170822

REACTIONS (4)
  - Pancytopenia [Recovered/Resolved]
  - Catheter site infection [Recovered/Resolved]
  - Stomatitis [Recovered/Resolved]
  - Anal inflammation [Recovered/Resolved]

NARRATIVE: CASE EVENT DATE: 20170824
